FAERS Safety Report 5481426-4 (Version None)
Quarter: 2007Q4

REPORT INFORMATION
  Report Type: 
  Country: None (occurrence: None)
  Receive Date: 20071010
  Receipt Date: 20071008
  Transmission Date: 20080405
  Serious: Yes (Hospitalization, Disabling)
  Sender: FDA-Public Use
  Company Number: B0482762A

PATIENT
  Age: 75 Year
  Sex: Male

DRUGS (11)
  1. ARTIST [Suspect]
     Indication: DRUG USE FOR UNKNOWN INDICATION
     Dosage: 40MG PER DAY
     Route: 048
     Dates: end: 20070616
  2. BEZATOL SR [Suspect]
     Dosage: 200MG PER DAY
     Route: 048
     Dates: end: 20070616
  3. ALMARL [Suspect]
     Indication: HYPERTENSION
     Dosage: 10MG PER DAY
     Route: 048
     Dates: end: 20070616
  4. OLMETEC [Suspect]
     Indication: HYPERTENSION
     Dosage: 40MG PER DAY
     Route: 048
     Dates: end: 20070616
  5. SELBEX [Concomitant]
     Dosage: 100MG PER DAY
  6. CALBLOCK [Concomitant]
     Dosage: 16MG TWICE PER DAY
  7. LIPITOR [Concomitant]
     Dosage: 10MG PER DAY
  8. TICLOPIDINE HCL [Concomitant]
     Dosage: 100MG PER DAY
     Dates: start: 20060316, end: 20070626
  9. DROXIDOPA [Concomitant]
     Dosage: 200MG PER DAY
     Dates: start: 20060316
  10. NEODOPASTON [Concomitant]
     Dates: start: 20060316
  11. LEVODOPA [Concomitant]
     Dosage: 100MG PER DAY

REACTIONS (18)
  - ALTERED STATE OF CONSCIOUSNESS [None]
  - APHASIA [None]
  - CEREBRAL INFARCTION [None]
  - DEPRESSED LEVEL OF CONSCIOUSNESS [None]
  - EXTRAOCULAR MUSCLE PARESIS [None]
  - FACIAL PARESIS [None]
  - GLOSSOPTOSIS [None]
  - HEPATIC CYST [None]
  - HYPERREFLEXIA [None]
  - HYPERTONIA [None]
  - HYPOGLYCAEMIA [None]
  - LYMPHADENOPATHY [None]
  - NEPHROLITHIASIS [None]
  - RENAL CYST [None]
  - RESPIRATION ABNORMAL [None]
  - SPEECH DISORDER [None]
  - STOMACH MASS [None]
  - UNRESPONSIVE TO STIMULI [None]
